FAERS Safety Report 15232173 (Version 1)
Quarter: 2018Q3

REPORT INFORMATION
  Report Type: Report from Study
  Country: LB (occurrence: LB)
  Receive Date: 20180802
  Receipt Date: 20180802
  Transmission Date: 20181010
  Serious: Yes (Other)
  Sender: FDA-Public Use
  Company Number: LB-EMD SERONO-9027682

PATIENT
  Age: 38 Year
  Sex: Male

DRUGS (2)
  1. REBIF [Suspect]
     Active Substance: INTERFERON BETA-1A
     Indication: MULTIPLE SCLEROSIS
     Dosage: PREFILLED SYRINGE
     Dates: start: 20180109
  2. REBIF [Suspect]
     Active Substance: INTERFERON BETA-1A
     Dosage: DOSE REINTRODUCED

REACTIONS (1)
  - Blood triglycerides increased [Not Recovered/Not Resolved]

NARRATIVE: CASE EVENT DATE: 20180510
